FAERS Safety Report 8409570-X (Version None)
Quarter: 2012Q2

REPORT INFORMATION
  Report Type: 
  Country: None (occurrence: None)
  Receive Date: 20120531
  Receipt Date: 20120531
  Transmission Date: 20120825
  Serious: Yes (Hospitalization)
  Sender: FDA-Public Use
  Company Number: None

PATIENT
  Age: 57 Year
  Sex: Male
  Weight: 97.1 kg

DRUGS (2)
  1. AMOXICILLIN AND CLAVULANATE POTASSIUM [Suspect]
     Indication: WOUND INFECTION
     Dosage: 500/125 MG BID PO
     Route: 048
     Dates: start: 20120105, end: 20120106
  2. AMOXICILLIN AND CLAVULANATE POTASSIUM [Suspect]
     Indication: SURGERY
     Dosage: 500/125 MG BID PO
     Route: 048
     Dates: start: 20120105, end: 20120106

REACTIONS (1)
  - TUBULOINTERSTITIAL NEPHRITIS [None]
